FAERS Safety Report 6161965-3 (Version None)
Quarter: 2009Q2

REPORT INFORMATION
  Report Type: 
  Country: None (occurrence: None)
  Receive Date: 20090421
  Receipt Date: 20090415
  Transmission Date: 20091009
  Serious: Yes (Death)
  Sender: FDA-Public Use
  Company Number: CA-ABBOTT-09P-028-0497122-00

PATIENT
  Sex: Male
  Weight: 79.45 kg

DRUGS (5)
  1. LUPRON DEPOT [Suspect]
     Indication: PROSTATE CANCER
     Dates: start: 20080522, end: 20080923
  2. WARFARIN SODIUM [Concomitant]
     Indication: INTERNATIONAL NORMALISED RATIO
     Route: 048
  3. CITALOPRAM HYDROBROMIDE [Concomitant]
     Indication: DEPRESSION
     Dosage: 20MG 1/2 TABLET DAILY
     Route: 048
  4. FLOMAX [Concomitant]
     Indication: DRUG USE FOR UNKNOWN INDICATION
     Route: 048
  5. ARTHROTEC [Concomitant]
     Indication: DRUG USE FOR UNKNOWN INDICATION
     Dosage: 50MG 2 TABLETS DAILY
     Route: 048

REACTIONS (2)
  - PROSTATE CANCER [None]
  - RENAL FAILURE [None]
